FAERS Safety Report 14745334 (Version 1)
Quarter: 2018Q2

REPORT INFORMATION
  Report Type: Spontaneous
  Country: US (occurrence: US)
  Receive Date: 20180411
  Receipt Date: 20180411
  Transmission Date: 20180711
  Serious: No
  Sender: FDA-Public Use
  Company Number: US-BAYER-2018-069537

PATIENT
  Age: 67 Year
  Sex: Female

DRUGS (3)
  1. ANTICOAGULANT SODIUM CITRATE [Concomitant]
     Active Substance: SODIUM CITRATE
  2. POTASSIUM [Concomitant]
     Active Substance: POTASSIUM
  3. ALEVE [Suspect]
     Active Substance: NAPROXEN SODIUM
     Indication: MUSCULOSKELETAL STIFFNESS
     Dosage: UNK
     Route: 048

REACTIONS (5)
  - Blood pressure abnormal [Recovered/Resolved]
  - Product use in unapproved indication [Unknown]
  - Flatulence [Unknown]
  - Pulse abnormal [Unknown]
  - Product use issue [Unknown]
